FAERS Safety Report 4374089-2 (Version None)
Quarter: 2004Q2

REPORT INFORMATION
  Report Type: 
  Country: None (occurrence: None)
  Receive Date: 20040602
  Receipt Date: 20040222
  Transmission Date: 20050107
  Serious: Yes (Other)
  Sender: FDA-Public Use
  Company Number: 1548

PATIENT
  Age: 62 Year
  Sex: Female
  Weight: 63.5036 kg

DRUGS (7)
  1. AVINZA [Suspect]
     Indication: PAIN
     Dosage: 60 MG QD PO
     Route: 048
     Dates: start: 20040207, end: 20040210
  2. CLONAZEPAM [Concomitant]
  3. MIRTAZAPINE [Concomitant]
  4. OLANZAPINE [Concomitant]
  5. SERTRALINE HCL [Concomitant]
  6. FENTANYL [Concomitant]
  7. VALPROIC ACID [Concomitant]

REACTIONS (1)
  - HYPOVENTILATION [None]
